FAERS Safety Report 7208467-0 (Version None)
Quarter: 2010Q4

REPORT INFORMATION
  Report Type: 
  Country: None (occurrence: None)
  Receive Date: 20101222
  Receipt Date: 20101210
  Transmission Date: 20110411
  Serious: Yes (Hospitalization, Other)
  Sender: FDA-Public Use
  Company Number: ACO_20919_2010

PATIENT
  Age: 63 Year
  Sex: Female
  Weight: 45.4 kg

DRUGS (10)
  1. AMPYRA [Suspect]
     Indication: GAIT DISTURBANCE
     Dosage: 10MG, QD, ORAL
     Route: 048
     Dates: start: 20101101, end: 20101208
  2. TIMOLOL MALEATE [Concomitant]
  3. LISINOPRIL [Concomitant]
  4. SIMVASTATIN [Concomitant]
  5. POTASSIUM (POTASSIUM) [Concomitant]
  6. NORTRIPTYLINE HCL [Concomitant]
  7. GABAPENTIN [Concomitant]
  8. BACLOFEN [Concomitant]
  9. OVER THE COUNTER COLACE (DOCUSATE SODIUM) [Concomitant]
  10. CITRACAL + D /01438101/ (CALCIUM CITRATE, ERGOCALCIFEROL) [Concomitant]

REACTIONS (6)
  - CONSTIPATION [None]
  - DYSKINESIA [None]
  - HEAD INJURY [None]
  - INAPPROPRIATE SCHEDULE OF DRUG ADMINISTRATION [None]
  - TIC [None]
  - URINARY TRACT INFECTION [None]
